FAERS Safety Report 21229699 (Version 1)
Quarter: 2022Q3

REPORT INFORMATION
  Report Type: Report from Study
  Country: US (occurrence: US)
  Receive Date: 20220818
  Receipt Date: 20220818
  Transmission Date: 20221026
  Serious: Yes (Hospitalization, Other)
  Sender: FDA-Public Use
  Company Number: US-BRISTOL-MYERS SQUIBB COMPANY-2022-088597

PATIENT
  Age: 78 Year
  Sex: Male
  Weight: 97.5 kg

DRUGS (1)
  1. REVLIMID [Suspect]
     Active Substance: LENALIDOMIDE
     Indication: Plasma cell myeloma
     Dosage: FOR 21 DAYS 7 DAY OFF 28 DAY CYCLE
     Route: 048
     Dates: start: 20180807

REACTIONS (4)
  - Photodermatosis [Unknown]
  - Tooth infection [Unknown]
  - Drug hypersensitivity [Unknown]
  - Internal haemorrhage [Unknown]

NARRATIVE: CASE EVENT DATE: 20220601
